FAERS Safety Report 16564458 (Version 1)
Quarter: 2019Q3

REPORT INFORMATION
  Report Type: Spontaneous
  Country: US (occurrence: US)
  Receive Date: 20190711
  Receipt Date: 20190711
  Transmission Date: 20191004
  Serious: No
  Sender: FDA-Public Use
  Company Number: None

PATIENT
  Sex: Male

DRUGS (1)
  1. NAPROXEN 500MG [Suspect]
     Active Substance: NAPROXEN

REACTIONS (3)
  - Vomiting [None]
  - Nausea [None]
  - Malaise [None]
